FAERS Safety Report 6345802-X (Version None)
Quarter: 2009Q3

REPORT INFORMATION
  Report Type: 
  Country: None (occurrence: None)
  Receive Date: 20090909
  Receipt Date: 20090713
  Transmission Date: 20100115
  Serious: Yes (Other)
  Sender: FDA-Public Use
  Company Number: ES-JNJFOC-20090704854

PATIENT
  Age: 17 Year
  Sex: Female

DRUGS (2)
  1. DARUNAVIR [Suspect]
     Indication: HIV INFECTION
     Route: 048
  2. ENFUVIRTIDE [Suspect]
     Indication: HIV INFECTION
     Route: 065

REACTIONS (3)
  - HYPERSENSITIVITY [None]
  - OFF LABEL USE [None]
  - WRONG TECHNIQUE IN DRUG USAGE PROCESS [None]
